FAERS Safety Report 10184969 (Version 1)
Quarter: 2014Q2

REPORT INFORMATION
  Report Type: Spontaneous
  Country: GB (occurrence: None)
  Receive Date: 20140519
  Receipt Date: 20140519
  Transmission Date: 20141212
  Serious: Yes (Congenital Anomaly, Other)
  Sender: FDA-Public Use
  Company Number: AUR-APL-2014-05628

PATIENT
  Sex: 0

DRUGS (2)
  1. CITALOPRAM [Suspect]
     Indication: ANXIETY
     Route: 064
  2. CITALOPRAM [Suspect]
     Indication: DEPRESSION
     Route: 064

REACTIONS (3)
  - Heart disease congenital [None]
  - Congenital anomaly [None]
  - Maternal drugs affecting foetus [None]
